FAERS Safety Report 14525030 (Version 2)
Quarter: 2018Q1

REPORT INFORMATION
  Report Type: Spontaneous
  Country: JP (occurrence: JP)
  Receive Date: 20180213
  Receipt Date: 20180308
  Transmission Date: 20180509
  Serious: Yes (Other)
  Sender: FDA-Public Use
  Company Number: JP-ASTELLAS-2018JP002415

PATIENT
  Age: 5 Month
  Sex: Female

DRUGS (5)
  1. CYCLOPHOSPHAMIDE. [Concomitant]
     Active Substance: CYCLOPHOSPHAMIDE
     Indication: BONE MARROW CONDITIONING REGIMEN
     Route: 042
  2. BUSULPHAN [Concomitant]
     Active Substance: BUSULFAN
     Indication: BONE MARROW CONDITIONING REGIMEN
     Route: 042
  3. METHOTREXATE. [Concomitant]
     Active Substance: METHOTREXATE
     Indication: PROPHYLAXIS AGAINST GRAFT VERSUS HOST DISEASE
     Dosage: UNK UNK, UNKNOWN FREQ.
     Route: 065
  4. VP-16 [Concomitant]
     Active Substance: ETOPOSIDE
     Indication: BONE MARROW CONDITIONING REGIMEN
     Route: 042
  5. PROGRAF [Suspect]
     Active Substance: TACROLIMUS\TACROLIMUS ANHYDROUS
     Indication: PROPHYLAXIS AGAINST GRAFT VERSUS HOST DISEASE
     Dosage: UNK UNK, UNKNOWN FREQ.
     Route: 048

REACTIONS (1)
  - Acute graft versus host disease [Unknown]
